FAERS Safety Report 8602864-4 (Version None)
Quarter: 2012Q3

REPORT INFORMATION
  Report Type: 
  Country: None (occurrence: None)
  Receive Date: 20120817
  Receipt Date: 20120809
  Transmission Date: 20120928
  Serious: Yes (Hospitalization)
  Sender: FDA-Public Use
  Company Number: US-GLAXOSMITHKLINE-A0989600A

PATIENT
  Age: 60 Year
  Sex: Female
  Weight: 43.6 kg

DRUGS (8)
  1. HUMIRA [Concomitant]
     Indication: PSORIATIC ARTHROPATHY
     Dosage: 40MG EVERY TWO WEEKS
     Dates: start: 20060101, end: 20120101
  2. NICOTINE [Concomitant]
  3. FLUTICASONE PROPIONATE [Suspect]
     Indication: CHRONIC OBSTRUCTIVE PULMONARY DISEASE
     Route: 065
     Dates: start: 20111201, end: 20120301
  4. ALPRAZOLAM [Concomitant]
     Indication: ANXIETY
  5. DILTIAZEM [Concomitant]
     Indication: HYPERTENSION
     Dosage: 60MG PER DAY
     Dates: start: 20120301
  6. ACETAMINOPHEN, ASPIRIN AND CAFFEINE [Concomitant]
  7. ALBUTEROL SULATE [Concomitant]
     Indication: CHRONIC OBSTRUCTIVE PULMONARY DISEASE
     Dosage: 2PUFF PER DAY
     Dates: start: 20120301
  8. OXYGEN [Concomitant]
     Indication: CHRONIC OBSTRUCTIVE PULMONARY DISEASE

REACTIONS (3)
  - CHRONIC OBSTRUCTIVE PULMONARY DISEASE [None]
  - DYSPNOEA [None]
  - STOMATITIS [None]
